FAERS Safety Report 5276249-5 (Version None)
Quarter: 2007Q1

REPORT INFORMATION
  Report Type: 
  Country: None (occurrence: None)
  Receive Date: 20070326
  Receipt Date: 20070312
  Transmission Date: 20070707
  Serious: Yes (Other)
  Sender: FDA-Public Use
  Company Number: US-ELI_LILLY_AND_COMPANY-US200703001080

PATIENT
  Sex: Male
  Weight: 82 kg

DRUGS (6)
  1. CYMBALTA [Suspect]
     Indication: DEPRESSION
     Dosage: 60 MG, UNK
     Dates: start: 20060101, end: 20070209
  2. CYMBALTA [Suspect]
     Dosage: 30 MG, EACH MORNING
     Dates: start: 20070209
  3. MIRTAZAPINE [Concomitant]
     Indication: DEPRESSION
     Dosage: 15 MG, EACH EVENING
     Dates: start: 20070209, end: 20070214
  4. TYLENOL                                 /SCH/ [Concomitant]
     Dosage: 325 MG, AS NEEDED
  5. BENADRYL [Concomitant]
     Dosage: 50 MG, AS NEEDED
  6. DISULFIRAM [Concomitant]
     Dosage: 250 MG, EACH MORNING

REACTIONS (1)
  - MENTAL STATUS CHANGES [None]
